FAERS Safety Report 7558811-X (Version None)
Quarter: 2011Q2

REPORT INFORMATION
  Report Type: 
  Country: None (occurrence: None)
  Receive Date: 20110621
  Receipt Date: 20110607
  Transmission Date: 20111010
  Serious: Yes (Hospitalization)
  Sender: FDA-Public Use
  Company Number: US-ROCHE-783124

PATIENT
  Sex: Female

DRUGS (7)
  1. BLINDED BEVACIZUMAB [Suspect]
     Route: 042
     Dates: end: 20100701
  2. PEGFILGRASTIM [Suspect]
     Dosage: ON DAY 2
     Route: 058
     Dates: start: 20100304
  3. DOXORUBICIN HCL [Suspect]
     Indication: BREAST CANCER
     Dosage: ON DAY 1. ROUTE: IVP.
     Route: 042
     Dates: start: 20100304, end: 20100715
  4. BLINDED BEVACIZUMAB [Suspect]
     Indication: BREAST CANCER
     Dosage: ON DAY 1.
     Route: 042
     Dates: start: 20100304
  5. CYCLOPHOSPHAMIDE [Suspect]
     Indication: BREAST CANCER
     Dosage: ON DAY 1
     Route: 042
     Dates: start: 20100304, end: 20100715
  6. PACLITAXEL [Suspect]
     Indication: BREAST CANCER
     Dosage: ON DAYS 1, 8 AND 15. CYCLE 21 DAYS
     Route: 042
     Dates: start: 20100304, end: 20100715
  7. FILGRASTIM [Suspect]
     Dosage: ON DAYS 2-11
     Route: 058
     Dates: start: 20100304

REACTIONS (5)
  - HYPOXIA [None]
  - PYREXIA [None]
  - DYSPNOEA [None]
  - CYSTITIS [None]
  - PNEUMONIA [None]
